FAERS Safety Report 7624498-0 (Version None)
Quarter: 2011Q3

REPORT INFORMATION
  Report Type: 
  Country: None (occurrence: None)
  Receive Date: 20110720
  Receipt Date: 20110711
  Transmission Date: 20111222
  Serious: Yes (Hospitalization)
  Sender: FDA-Public Use
  Company Number: FR-PFIZER INC-2011163390

PATIENT
  Age: 82 Year
  Sex: Female

DRUGS (2)
  1. CORDARONE [Suspect]
     Indication: ATRIAL FIBRILLATION
     Dosage: 200 MG, 1X/DAY
     Route: 048
     Dates: end: 20110421
  2. DIGOXIN [Interacting]
     Indication: ATRIAL FIBRILLATION
     Dosage: 0.25 MG, 1X/DAY
     Route: 048
     Dates: start: 20110421, end: 20110506

REACTIONS (7)
  - TOXICITY TO VARIOUS AGENTS [None]
  - NAUSEA [None]
  - BRADYCARDIA [None]
  - HYPERKALAEMIA [None]
  - CARDIOACTIVE DRUG LEVEL INCREASED [None]
  - DRUG INTERACTION [None]
  - VOMITING [None]
